FAERS Safety Report 26215318 (Version 1)
Quarter: 2025Q4

REPORT INFORMATION
  Report Type: Spontaneous
  Country: EU (occurrence: EU)
  Receive Date: 20251230
  Receipt Date: 20251230
  Transmission Date: 20260117
  Serious: Yes (Hospitalization, Other)
  Sender: BAXTER
  Company Number: None

PATIENT
  Age: 54 Year
  Sex: Female

DRUGS (4)
  1. BENDAMUSTINE [Suspect]
     Active Substance: BENDAMUSTINE
     Indication: Hodgkin^s disease refractory
     Dosage: 160 MG, QD
     Route: 042
     Dates: start: 20251016, end: 20251017
  2. BENDAMUSTINE [Suspect]
     Active Substance: BENDAMUSTINE
     Dosage: 160 MG, 1 TOTAL
     Route: 042
     Dates: start: 20251106, end: 20251106
  3. BRENTUXIMAB VEDOTIN [Suspect]
     Active Substance: BRENTUXIMAB VEDOTIN
     Indication: Hodgkin^s disease refractory
     Dosage: 70 MG, 1 TOTAL
     Route: 042
     Dates: start: 20251016, end: 20251016
  4. BRENTUXIMAB VEDOTIN [Suspect]
     Active Substance: BRENTUXIMAB VEDOTIN
     Dosage: 70 MG, 1 TOTAL
     Route: 042
     Dates: start: 20251106, end: 20251106

REACTIONS (14)
  - Transaminases increased [Recovering/Resolving]
  - Cholestasis [Recovering/Resolving]
  - Purpura [Recovering/Resolving]
  - Acute kidney injury [Recovering/Resolving]
  - C-reactive protein increased [Recovering/Resolving]
  - Hyperleukocytosis [Recovering/Resolving]
  - Abdominal pain [Recovering/Resolving]
  - Anaemia [Recovering/Resolving]
  - Chills [Recovered/Resolved]
  - Thrombocytopenia [Recovering/Resolving]
  - Hypotension [Recovered/Resolved]
  - Diarrhoea [Recovered/Resolved]
  - Lymphopenia [Recovering/Resolving]
  - Pyrexia [Recovered/Resolved]

NARRATIVE: CASE EVENT DATE: 20251106
